FAERS Safety Report 17300331 (Version 1)
Quarter: 2020Q1

REPORT INFORMATION
  Report Type: Spontaneous
  Country: US (occurrence: US)
  Receive Date: 20200122
  Receipt Date: 20200122
  Transmission Date: 20200409
  Serious: No
  Sender: FDA-Public Use
  Company Number: US-ALLERGAN-1901443US

PATIENT
  Age: 79 Year
  Sex: Female

DRUGS (3)
  1. VOLTARIAN [Concomitant]
     Indication: DIABETES MELLITUS
     Dosage: UNK, BID
  2. VITAMIN FOR HER EYE [Concomitant]
     Dosage: UNK
  3. RESTASIS [Suspect]
     Active Substance: CYCLOSPORINE
     Indication: DRY EYE
     Dosage: 2 GTT, QD
     Route: 047
     Dates: start: 2016

REACTIONS (4)
  - Product dose omission [Unknown]
  - Vision blurred [Unknown]
  - Intentional product misuse [Unknown]
  - Expired product administered [Unknown]

NARRATIVE: CASE EVENT DATE: 201712
